FAERS Safety Report 7293429-8 (Version None)
Quarter: 2011Q1

REPORT INFORMATION
  Report Type: 
  Country: None (occurrence: None)
  Receive Date: 20110215
  Receipt Date: 20110207
  Transmission Date: 20110831
  Serious: Yes (Other)
  Sender: FDA-Public Use
  Company Number: DE-ELI_LILLY_AND_COMPANY-DE201102001850

PATIENT
  Age: 58 Year
  Sex: Male

DRUGS (5)
  1. VELMETIA [Concomitant]
  2. LISINOPRIL [Concomitant]
     Dosage: UNK, UNKNOWN
  3. ASPIRIN [Concomitant]
  4. SPIRONOLACTONE [Concomitant]
     Dosage: 50 MG, UNKNOWN
  5. BYETTA [Suspect]
     Dosage: 10 UG, UNK
     Route: 058
     Dates: start: 20100101

REACTIONS (1)
  - RETINAL VEIN THROMBOSIS [None]
